FAERS Safety Report 10027076 (Version 1)
Quarter: 2014Q1

REPORT INFORMATION
  Report Type: Spontaneous
  Country: DE (occurrence: DE)
  Receive Date: 20140321
  Receipt Date: 20140321
  Transmission Date: 20141002
  Serious: Yes (Death, Other)
  Sender: FDA-Public Use
  Company Number: PHHY2014DE029481

PATIENT
  Age: 51 Year
  Sex: Male
  Weight: 68 kg

DRUGS (3)
  1. TETRAZEPAM [Suspect]
  2. DIPHENHYDRAMINE HYDROCHLORIDE [Suspect]
     Route: 048
  3. NICOTINE [Suspect]
     Route: 062

REACTIONS (6)
  - Toxicity to various agents [Fatal]
  - Completed suicide [Fatal]
  - Arteriosclerosis [Unknown]
  - Emphysema [Unknown]
  - Pulmonary congestion [Unknown]
  - Cell death [Unknown]
